FAERS Safety Report 16971960 (Version 2)
Quarter: 2019Q4

REPORT INFORMATION
  Report Type: Spontaneous
  Country: US (occurrence: US)
  Receive Date: 20191029
  Receipt Date: 20191108
  Transmission Date: 20200122
  Serious: Yes (Life-Threatening, Hospitalization)
  Sender: FDA-Public Use
  Company Number: US-TEVA-2019-US-1128821

PATIENT
  Age: 3 Year
  Sex: Female
  Weight: 13.5 kg

DRUGS (9)
  1. DIHYDROCODEINE [Suspect]
     Active Substance: DIHYDROCODEINE
     Dosage: FORMULATION: PILL
     Route: 048
  2. HYDROCODONE [Suspect]
     Active Substance: HYDROCODONE
     Dosage: FORMULATION: PILL
     Route: 048
  3. FENTANYL. [Suspect]
     Active Substance: FENTANYL
     Indication: ANALGESIC THERAPY
     Dosage: ON DAY 1 AT 11:10 AM
     Route: 050
  4. FENTANYL. [Suspect]
     Active Substance: FENTANYL
     Indication: ANALGESIC THERAPY
     Route: 065
  5. MIDAZOLAM [Concomitant]
     Active Substance: MIDAZOLAM HYDROCHLORIDE
     Indication: SEDATIVE THERAPY
     Dosage: STARTED ON DAY 1 AT 3:45 PM
     Route: 065
  6. HYDROMORPHONE [Suspect]
     Active Substance: HYDROMORPHONE
     Dosage: FORMULATION: PILL
     Route: 048
  7. FENTANYL. [Suspect]
     Active Substance: FENTANYL
     Indication: ANALGESIC THERAPY
     Dosage: ON DAY 0 AT 1:07 PM
     Route: 050
  8. FENTANYL. [Suspect]
     Active Substance: FENTANYL
     Indication: ANALGESIC THERAPY
     Dosage: STARTED ON DAY 1 AT 12:30AM; AS NEEDED
     Route: 050
  9. MIDAZOLAM [Concomitant]
     Active Substance: MIDAZOLAM HYDROCHLORIDE
     Indication: SEDATIVE THERAPY
     Route: 065

REACTIONS (10)
  - Accidental overdose [Recovering/Resolving]
  - Gross motor delay [Unknown]
  - Speech disorder [Unknown]
  - Fine motor delay [Unknown]
  - Brain oedema [Recovering/Resolving]
  - Toxicity to various agents [Recovering/Resolving]
  - Brain herniation [Recovering/Resolving]
  - Toxic leukoencephalopathy [Recovering/Resolving]
  - Gait disturbance [Unknown]
  - Accidental exposure to product [Recovering/Resolving]
